FAERS Safety Report 16174538 (Version 1)
Quarter: 2019Q2

REPORT INFORMATION
  Report Type: Spontaneous
  Country: US (occurrence: US)
  Receive Date: 20190409
  Receipt Date: 20190409
  Transmission Date: 20190711
  Serious: No
  Sender: FDA-Public Use
  Company Number: US-LEO PHARMA-317756

PATIENT
  Sex: Female

DRUGS (1)
  1. SKINOREN [Suspect]
     Active Substance: AZELAIC ACID
     Indication: PAPULOPUSTULAR ROSACEA
     Dosage: ROSACEA IS BACK AS OF TODAY 25-MAR-19 AND PATIENT USED IT FOR 3 WEEKS
     Route: 061

REACTIONS (2)
  - Drug ineffective [Unknown]
  - Rosacea [Unknown]
